FAERS Safety Report 5326463-5 (Version None)
Quarter: 2007Q2

REPORT INFORMATION
  Report Type: 
  Country: None (occurrence: None)
  Receive Date: 20070516
  Receipt Date: 20061207
  Transmission Date: 20071010
  Serious: Yes (Other)
  Sender: FDA-Public Use
  Company Number: US-ROCHE-474675

PATIENT
  Age: 56 Year
  Sex: Male

DRUGS (5)
  1. CELLCEPT [Suspect]
     Dosage: DOSE REDUCED.
     Route: 065
  2. CELLCEPT [Suspect]
     Dosage: DOSE INCREASED
     Route: 065
  3. CELLCEPT [Suspect]
     Dosage: DOSE INCREASED.
     Route: 065
  4. TACROLIMUS [Suspect]
     Dosage: DISCONTINUED.
     Route: 065
  5. TACROLIMUS [Suspect]
     Route: 065

REACTIONS (1)
  - NEUTROPHIL PELGER-HUET ANOMALY PRESENT [None]
